FAERS Safety Report 13010532 (Version 1)
Quarter: 2016Q4

REPORT INFORMATION
  Report Type: Spontaneous
  Country: US (occurrence: US)
  Receive Date: 20161208
  Receipt Date: 20161208
  Transmission Date: 20170207
  Serious: No
  Sender: FDA-Public Use
  Company Number: None

PATIENT
  Age: 72 Year
  Sex: Female
  Weight: 62.2 kg

DRUGS (4)
  1. ZOLPIDEM [Concomitant]
     Active Substance: ZOLPIDEM\ZOLPIDEM TARTRATE
  2. IBUPROFEN 600MG TAB LEG [Suspect]
     Active Substance: IBUPROFEN
     Indication: PAIN
     Dosage: 600 90 3 TIMES A DAY MOUTH
     Route: 048
     Dates: start: 201606, end: 20160731
  3. LEVOXYL [Concomitant]
     Active Substance: LEVOTHYROXINE SODIUM
  4. AMLODIPINE [Concomitant]
     Active Substance: AMLODIPINE BESYLATE

REACTIONS (8)
  - Abasia [None]
  - Fall [None]
  - Joint instability [None]
  - Therapy non-responder [None]
  - Weight bearing difficulty [None]
  - Arthralgia [None]
  - Joint injury [None]
  - Impaired quality of life [None]

NARRATIVE: CASE EVENT DATE: 20160731
